FAERS Safety Report 8099177-9 (Version None)
Quarter: 2012Q1

REPORT INFORMATION
  Report Type: 
  Country: None (occurrence: None)
  Receive Date: 20120129
  Receipt Date: 20110930
  Transmission Date: 20120608
  Serious: No
  Sender: FDA-Public Use
  Company Number: US-ABBOTT-11P-163-0860889-00

PATIENT
  Age: 59 Year
  Sex: Female

DRUGS (8)
  1. HUMIRA [Suspect]
     Route: 058
     Dates: start: 20110501
  2. UNKNOWN NARCOTIC [Concomitant]
     Indication: PAIN
     Dosage: PRN
  3. HUMIRA [Suspect]
     Route: 058
     Dates: start: 20110401, end: 20110401
  4. UNKNOWN BLOOD THINNER [Concomitant]
     Indication: THROMBOSIS
  5. UNKNOWN MUSCLE RELAXER [Concomitant]
     Indication: MUSCLE SPASMS
  6. UNKNOWN BLOOD THINNER [Concomitant]
     Indication: TRANSIENT ISCHAEMIC ATTACK
  7. HUMIRA [Suspect]
     Indication: CROHN'S DISEASE
     Route: 058
     Dates: start: 20110401, end: 20110401
  8. UNKNOWN BETA BLOCKER [Concomitant]
     Indication: CARDIAC DISORDER

REACTIONS (3)
  - ABDOMINAL PAIN UPPER [None]
  - FREQUENT BOWEL MOVEMENTS [None]
  - CROHN'S DISEASE [None]
